FAERS Safety Report 21637540 (Version 4)
Quarter: 2023Q1

REPORT INFORMATION
  Report Type: Spontaneous
  Country: US (occurrence: US)
  Receive Date: 20221124
  Receipt Date: 20230113
  Transmission Date: 20230417
  Serious: No
  Sender: FDA-Public Use
  Company Number: US-PFIZER INC-202201321543

PATIENT
  Age: 65 Year
  Sex: Female
  Weight: 78.93 kg

DRUGS (4)
  1. PREMARIN [Suspect]
     Active Substance: ESTROGENS, CONJUGATED
     Indication: Hormone replacement therapy
     Dosage: 0.5 G, 2X/WEEK (0.5 GRAM, VAGINALLY, 2 TIMES A WEEK AT BEDTIME)
     Route: 067
     Dates: start: 202203
  2. PREMARIN [Suspect]
     Active Substance: ESTROGENS, CONJUGATED
     Indication: Vulvovaginal dryness
  3. ESTRADIOL [Concomitant]
     Active Substance: ESTRADIOL
     Indication: Vulvovaginal dryness
     Dosage: 0.05 G, 2X/WEEK
     Dates: start: 202201, end: 202203
  4. ESTRADIOL [Concomitant]
     Active Substance: ESTRADIOL
     Dosage: 0.05 G, 2X/WEEK
     Dates: start: 202203

REACTIONS (3)
  - Inflammation [Recovered/Resolved]
  - Vulvovaginal discomfort [Unknown]
  - Burning sensation [Recovered/Resolved]

NARRATIVE: CASE EVENT DATE: 20220301
